FAERS Safety Report 11878310 (Version 1)
Quarter: 2015Q4

REPORT INFORMATION
  Report Type: Spontaneous
  Country: US (occurrence: None)
  Receive Date: 20151229
  Receipt Date: 20151229
  Transmission Date: 20160305
  Serious: Yes (Life-Threatening, Hospitalization)
  Sender: FDA-Public Use
  Company Number: None

PATIENT
  Age: 38 Year
  Sex: Female
  Weight: 65.77 kg

DRUGS (3)
  1. VITAMIN D [Concomitant]
     Active Substance: CHOLECALCIFEROL
  2. TRANSDERM SCOP [Suspect]
     Active Substance: SCOPOLAMINE
     Indication: PROPHYLAXIS OF NAUSEA AND VOMITING
     Dosage: APPLIED AS MEDICATED PATCH TO SKIN
     Dates: start: 20151214, end: 20151216
  3. VITAMIN E [Concomitant]
     Active Substance: .ALPHA.-TOCOPHEROL

REACTIONS (15)
  - Sinus arrest [None]
  - Headache [None]
  - Dyspnoea [None]
  - Heart rate decreased [None]
  - Abdominal pain upper [None]
  - Nausea [None]
  - Computerised tomogram abdomen abnormal [None]
  - Vision blurred [None]
  - Electrocardiogram P wave abnormal [None]
  - Chest pain [None]
  - Hypotension [None]
  - Bradycardia [None]
  - Intestinal obstruction [None]
  - Vomiting [None]
  - Migraine [None]

NARRATIVE: CASE EVENT DATE: 20151216
